FAERS Safety Report 7384204-4 (Version None)
Quarter: 2011Q1

REPORT INFORMATION
  Report Type: 
  Country: None (occurrence: None)
  Receive Date: 20110322
  Receipt Date: 20110307
  Transmission Date: 20110831
  Serious: Yes (Hospitalization)
  Sender: FDA-Public Use
  Company Number: JPI-P-012871

PATIENT
  Age: 65 Year
  Sex: Female
  Weight: 45.3597 kg

DRUGS (14)
  1. ARMODAFINIL [Concomitant]
  2. ARMODAFINIL [Suspect]
     Indication: NARCOLEPSY
     Dosage: 300, 250 MG,ORAL
     Route: 048
     Dates: start: 20090801
  3. HYDROCHLOROTHIAZIDE [Suspect]
     Indication: OSTEOPOROSIS
     Dosage: ORAL
     Route: 048
  4. XYREM [Suspect]
     Indication: NARCOLEPSY
     Dosage: 6,4.5,7.5 GM (2.25,3.75GM, 2 IN 1 D)ORAL
     Route: 048
     Dates: start: 20070412, end: 20070515
  5. XYREM [Suspect]
     Indication: NARCOLEPSY
     Dosage: 6,4.5,7.5 GM (2.25,3.75GM, 2 IN 1 D)ORAL
     Route: 048
     Dates: start: 20070516, end: 20070523
  6. XYREM [Suspect]
     Indication: NARCOLEPSY
     Dosage: 6,4.5,7.5 GM (2.25,3.75GM, 2 IN 1 D)ORAL
     Route: 048
     Dates: start: 20060525, end: 20060901
  7. XYREM [Suspect]
     Indication: NARCOLEPSY
     Dosage: 6,4.5,7.5 GM (2.25,3.75GM, 2 IN 1 D)ORAL
     Route: 048
     Dates: start: 20070524
  8. XYREM [Suspect]
     Indication: NARCOLEPSY
     Dosage: 6,4.5,7.5 GM (2.25,3.75GM, 2 IN 1 D)ORAL
     Route: 048
     Dates: start: 20100501, end: 20100101
  9. XYREM [Suspect]
     Indication: NARCOLEPSY
     Dosage: 6,4.5,7.5 GM (2.25,3.75GM, 2 IN 1 D)ORAL
     Route: 048
     Dates: start: 20070329, end: 20070411
  10. XYREM [Suspect]
     Indication: NARCOLEPSY
     Dosage: 6,4.5,7.5 GM (2.25,3.75GM, 2 IN 1 D)ORAL
     Route: 048
     Dates: start: 20101221
  11. XYREM [Suspect]
     Indication: NARCOLEPSY
     Dosage: 6,4.5,7.5 GM (2.25,3.75GM, 2 IN 1 D)ORAL
     Route: 048
     Dates: end: 20101219
  12. FLUVOXAMINE [Concomitant]
  13. OLANZAPINE [Concomitant]
  14. FLUOXETINE [Concomitant]

REACTIONS (11)
  - FALL [None]
  - NAUSEA [None]
  - SOMNOLENCE [None]
  - FEELING ABNORMAL [None]
  - JOINT INJURY [None]
  - TREATMENT NONCOMPLIANCE [None]
  - BALANCE DISORDER [None]
  - ANXIETY [None]
  - HYPONATRAEMIA [None]
  - TREMOR [None]
  - DISTURBANCE IN ATTENTION [None]
